FAERS Safety Report 10369595 (Version 4)
Quarter: 2017Q3

REPORT INFORMATION
  Report Type: Report from Study
  Country: US (occurrence: US)
  Receive Date: 20140807
  Receipt Date: 20170922
  Transmission Date: 20171127
  Serious: No
  Sender: FDA-Public Use
  Company Number: US-AMGEN INC.-USASP2014021123

PATIENT
  Age: 56 Year
  Sex: Female

DRUGS (16)
  1. ALOXI [Concomitant]
     Active Substance: PALONOSETRON HYDROCHLORIDE
     Dosage: 0.75 MG, UNK
     Route: 042
     Dates: start: 20110715, end: 20110715
  2. CARBOPLATIN. [Concomitant]
     Active Substance: CARBOPLATIN
     Dosage: 600 MG, UNK
     Dates: start: 20110715, end: 20110715
  3. HERCEPTIN [Suspect]
     Active Substance: TRASTUZUMAB
     Indication: BREAST CANCER
     Dosage: 270 MG, UNK
     Route: 042
     Dates: start: 20110715, end: 20110715
  4. COMPAZINE [Concomitant]
     Active Substance: PROCHLORPERAZINE MALEATE
     Dosage: 10 MG, UNK
     Route: 048
     Dates: start: 20110722, end: 20110722
  5. HERCEPTIN [Suspect]
     Active Substance: TRASTUZUMAB
     Dosage: 135 MG, UNK
     Route: 042
     Dates: start: 20110722, end: 20110930
  6. NEULASTA [Concomitant]
     Active Substance: PEGFILGRASTIM
     Dosage: UNK
     Route: 042
     Dates: start: 20110919, end: 20110919
  7. BACTRIM [Suspect]
     Active Substance: SULFAMETHOXAZOLE\TRIMETHOPRIM
     Indication: PRODUCT USED FOR UNKNOWN INDICATION
     Dosage: UNK
     Route: 065
  8. NEULASTA [Concomitant]
     Active Substance: PEGFILGRASTIM
     Dosage: 6 MG, UNK
     Route: 058
  9. TAXOTERE [Concomitant]
     Active Substance: DOCETAXEL
     Dosage: 130 MG, UNK
     Dates: start: 20110715, end: 20110715
  10. ALOXI [Concomitant]
     Active Substance: PALONOSETRON HYDROCHLORIDE
     Dosage: 0.25 MG, UNK
  11. ZOFRAN [Concomitant]
     Active Substance: ONDANSETRON HYDROCHLORIDE
     Dosage: UNK
     Route: 042
     Dates: start: 20110919, end: 20110919
  12. NEUPOGEN [Suspect]
     Active Substance: FILGRASTIM
     Indication: BREAST CANCER
     Dosage: 480 MUG, UNK
     Route: 058
     Dates: start: 20110729, end: 20110729
  13. EMEND [Concomitant]
     Active Substance: APREPITANT
     Dosage: 150 MG, UNK
     Dates: start: 20110715, end: 20110715
  14. DEXAMETHASONE. [Concomitant]
     Active Substance: DEXAMETHASONE
     Dosage: 20 MG, UNK
     Dates: start: 20110715, end: 20110715
  15. ATIVAN [Concomitant]
     Active Substance: LORAZEPAM
     Dosage: 0.5 MG, UNK
     Dates: start: 20110715, end: 20110715
  16. CARBOPLATIN. [Concomitant]
     Active Substance: CARBOPLATIN
     Dosage: 774 MG, UNK

REACTIONS (5)
  - Abdominal pain [Unknown]
  - Fatigue [Unknown]
  - Swelling [Unknown]
  - Eye disorder [Unknown]
  - Drug hypersensitivity [Unknown]
